FAERS Safety Report 21498158 (Version 1)
Quarter: 2022Q4

REPORT INFORMATION
  Report Type: Spontaneous
  Country: DE (occurrence: DE)
  Receive Date: 20221024
  Receipt Date: 20221024
  Transmission Date: 20230112
  Serious: Yes (Hospitalization)
  Sender: FDA-Public Use
  Company Number: DE-NOVARTISPH-NVSC2020DE339850

PATIENT
  Age: 98 Year
  Sex: Female
  Weight: 64 kg

DRUGS (6)
  1. ASPIRIN [Suspect]
     Active Substance: ASPIRIN
     Indication: Product used for unknown indication
     Dosage: 100 MG, QD (1-0-0-0)
     Route: 048
  2. LACTULOSE [Suspect]
     Active Substance: LACTULOSE
     Indication: Product used for unknown indication
     Dosage: UNK (SAFT)
     Route: 065
  3. CANDESARTAN CILEXETIL\HYDROCHLOROTHIAZIDE [Concomitant]
     Active Substance: CANDESARTAN CILEXETIL\HYDROCHLOROTHIAZIDE
     Indication: Product used for unknown indication
     Dosage: (16/12.5 MG, 1-0-0-0)
     Route: 048
  4. TAVU [Concomitant]
     Indication: Product used for unknown indication
     Dosage: 50MIKROGRAMM LATANOPROST + 5MG TIMOLOL PRO 1ML, DROPS, 1-0-0-0
     Route: 047
  5. TROSPIUM [Concomitant]
     Active Substance: TROSPIUM
     Indication: Product used for unknown indication
     Dosage: 30 MG, BID (1-0-1-0)
     Route: 048
  6. SIMVASTATIN [Concomitant]
     Active Substance: SIMVASTATIN
     Indication: Product used for unknown indication
     Dosage: 20 MG, QD (0-0-0.5-0)
     Route: 048

REACTIONS (4)
  - Diarrhoea haemorrhagic [Unknown]
  - Constipation [Unknown]
  - Diverticulum intestinal haemorrhagic [Unknown]
  - Haematochezia [Unknown]
